FAERS Safety Report 23329513 (Version 3)
Quarter: 2025Q3

REPORT INFORMATION
  Report Type: Report from Study
  Country: US (occurrence: US)
  Receive Date: 20231222
  Receipt Date: 20250731
  Transmission Date: 20251020
  Serious: Yes (Hospitalization, Other)
  Sender: TAKEDA
  Company Number: US-TAKEDA-2023TUS122901

PATIENT
  Age: 3 Year
  Sex: Female

DRUGS (13)
  1. TEDUGLUTIDE [Suspect]
     Active Substance: TEDUGLUTIDE
     Indication: Short-bowel syndrome
  2. TEDUGLUTIDE [Suspect]
     Active Substance: TEDUGLUTIDE
     Dosage: 0.7 MILLIGRAM, QD
  3. TEDUGLUTIDE [Suspect]
     Active Substance: TEDUGLUTIDE
     Dosage: UNK, UNK, QD
  4. TEDUGLUTIDE [Suspect]
     Active Substance: TEDUGLUTIDE
  5. ALBUTEROL SULFATE [Concomitant]
     Active Substance: ALBUTEROL SULFATE
  6. CALMOSEPTINE [Concomitant]
     Active Substance: MENTHOL\ZINC OXIDE
  7. DIAZEPAM [Concomitant]
     Active Substance: DIAZEPAM
     Dosage: 0.7 MILLILITER, BID
  8. KONVOMEP [Concomitant]
     Active Substance: OMEPRAZOLE\SODIUM BICARBONATE
     Dosage: 7 MILLILITER, QD
  9. LOPERAMIDE HYDROCHLORIDE [Concomitant]
     Active Substance: LOPERAMIDE HYDROCHLORIDE
     Dosage: 2 MILLIGRAM, BID
  10. NYSTATIN [Concomitant]
     Active Substance: NYSTATIN
  11. PULMICORT FLEXHALER [Concomitant]
     Active Substance: BUDESONIDE
     Dosage: UNK UNK, BID
  12. TPN [Concomitant]
     Active Substance: AMINO ACIDS\DEXTROSE\ELECTROLYTES NOS\SOYBEAN OIL
  13. TRIAMCINOLONE ACETONIDE [Concomitant]
     Active Substance: TRIAMCINOLONE ACETONIDE
     Indication: Erythema
     Dosage: UNK UNK, BID

REACTIONS (12)
  - Vascular device infection [Unknown]
  - Norovirus infection [Unknown]
  - Dehydration [Unknown]
  - Metabolic acidosis [Unknown]
  - Pyrexia [Unknown]
  - Medical device site infection [Unknown]
  - Gastrointestinal microorganism overgrowth [Unknown]
  - Frequent bowel movements [Unknown]
  - Dermatitis diaper [Unknown]
  - Gastrointestinal disorder [Unknown]
  - Mucous stools [Unknown]
  - Cough [Unknown]

NARRATIVE: CASE EVENT DATE: 20250715
